FAERS Safety Report 23760586 (Version 1)
Quarter: 2024Q2

REPORT INFORMATION
  Report Type: Other
  Country: US (occurrence: US)
  Receive Date: 20240419
  Receipt Date: 20240419
  Transmission Date: 20240716
  Serious: No
  Sender: FDA-Public Use
  Company Number: US-Nobelpharma America, LLC-NPA-2024-00605

PATIENT
  Sex: Male

DRUGS (7)
  1. HYFTOR [Suspect]
     Active Substance: SIROLIMUS
     Indication: Tuberous sclerosis complex
     Dosage: 0.2%: APPLY TWICE DAILY TO FACIAL ANGIOFIBROMAS
     Route: 003
     Dates: start: 20230823
  2. AFINITOR [Suspect]
     Active Substance: EVEROLIMUS
  3. AFINITOR [Suspect]
     Active Substance: EVEROLIMUS
  4. CLOBAZAM [Suspect]
     Active Substance: CLOBAZAM
  5. CONCERTA [Suspect]
     Active Substance: METHYLPHENIDATE HYDROCHLORIDE
  6. KEPPRA [Suspect]
     Active Substance: LEVETIRACETAM
  7. AFINITOR [Concomitant]
     Active Substance: EVEROLIMUS

REACTIONS (1)
  - Burning sensation [Not Recovered/Not Resolved]
